FAERS Safety Report 4772247-6 (Version None)
Quarter: 2005Q3

REPORT INFORMATION
  Report Type: 
  Country: None (occurrence: None)
  Receive Date: 20050919
  Receipt Date: 20050419
  Transmission Date: 20060218
  Serious: No
  Sender: FDA-Public Use
  Company Number: US-BRISTOL-MYERS SQUIBB COMPANY-12940524

PATIENT
  Age: 52 Year
  Sex: Female

DRUGS (11)
  1. DEFINITY [Suspect]
     Route: 042
     Dates: start: 20050415, end: 20050415
  2. PROTONIX [Concomitant]
  3. MULTI-VITAMINS [Concomitant]
  4. ASPIRIN [Concomitant]
  5. COREG [Concomitant]
  6. ELAVIL [Concomitant]
  7. LISINOPRIL [Concomitant]
  8. ZOLOFT [Concomitant]
  9. TRAZODONE HCL [Concomitant]
  10. FOLATE [Concomitant]
  11. CLARITIN [Concomitant]

REACTIONS (1)
  - BACK PAIN [None]
